FAERS Safety Report 6669957-2 (Version None)
Quarter: 2010Q2

REPORT INFORMATION
  Report Type: 
  Country: None (occurrence: None)
  Receive Date: 20100406
  Receipt Date: 20100127
  Transmission Date: 20101027
  Serious: No
  Sender: FDA-Public Use
  Company Number: US-ALLERGAN-1001105US

PATIENT
  Age: 64 Year
  Sex: Female

DRUGS (3)
  1. LATISSE [Suspect]
     Indication: GROWTH OF EYELASHES
     Dosage: UNK
     Dates: start: 20091101, end: 20100124
  2. SYNTHROID [Concomitant]
     Indication: HYPOTHYROIDISM
     Dosage: 88 MG, UNK
  3. DILANTIN [Concomitant]
     Indication: CONVULSION
     Dosage: 300 MG, UNK

REACTIONS (3)
  - DRY EYE [None]
  - EYE IRRITATION [None]
  - HEADACHE [None]
